FAERS Safety Report 8201505 (Version 2)
Quarter: 2013Q2

REPORT INFORMATION
  Report Type: Report from Study
  Country: FR (occurrence: FR)
  Receive Date: 20111027
  Receipt Date: 20130610
  Transmission Date: 20140414
  Serious: Yes (Hospitalization)
  Sender: FDA-Public Use
  Company Number: FR-BIOGENIDEC-2011BI040331

PATIENT
  Age: 64 Year
  Sex: Female

DRUGS (4)
  1. TYSABRI [Suspect]
     Indication: RELAPSING-REMITTING MULTIPLE SCLEROSIS
     Route: 042
     Dates: start: 20100525
  2. PARACETAMOL [Concomitant]
     Indication: PAIN
  3. TAHOR [Concomitant]
  4. RIVOTRIL [Concomitant]

REACTIONS (1)
  - Drug-induced liver injury [Recovered/Resolved]
